FAERS Safety Report 4673471-3 (Version None)
Quarter: 2005Q2

REPORT INFORMATION
  Report Type: 
  Country: None (occurrence: None)
  Receive Date: 20050525
  Receipt Date: 20050208
  Transmission Date: 20051028
  Serious: No
  Sender: FDA-Public Use
  Company Number: US-GLAXOSMITHKLINE-A0544546A

PATIENT
  Age: 21 Year
  Sex: Female

DRUGS (3)
  1. EPZICOM [Suspect]
     Indication: HIV INFECTION
     Dosage: 1TAB PER DAY
     Route: 048
     Dates: start: 20050124, end: 20050208
  2. BACTRIM [Concomitant]
  3. LEXIVA [Concomitant]

REACTIONS (1)
  - RASH MACULO-PAPULAR [None]
